FAERS Safety Report 6478687-1 (Version None)
Quarter: 2009Q4

REPORT INFORMATION
  Report Type: 
  Country: None (occurrence: None)
  Receive Date: 20091207
  Receipt Date: 20091127
  Transmission Date: 20100525
  Serious: Yes (Hospitalization)
  Sender: FDA-Public Use
  Company Number: FR-PFIZER INC-2009303363

PATIENT
  Age: 48 Year
  Sex: Male

DRUGS (1)
  1. SALAZOPYRIN [Suspect]
     Indication: SPONDYLITIS
     Dosage: UNK
     Route: 048
     Dates: start: 19980501

REACTIONS (1)
  - PULMONARY EMBOLISM [None]
